FAERS Safety Report 4799959-2 (Version None)
Quarter: 2005Q4

REPORT INFORMATION
  Report Type: 
  Country: None (occurrence: None)
  Receive Date: 20051017
  Receipt Date: 20051007
  Transmission Date: 20060501
  Serious: Yes (Death, Other)
  Sender: FDA-Public Use
  Company Number: 200518932GDDC

PATIENT
  Age: 75 Year
  Sex: Male

DRUGS (12)
  1. RIFADIN [Suspect]
     Indication: PLEURISY
     Route: 048
     Dates: start: 20050728, end: 20050901
  2. SALAZOPYRIN [Concomitant]
     Route: 048
  3. TENORMIN [Concomitant]
     Route: 048
  4. NORVASC [Concomitant]
     Route: 048
  5. LASIX [Concomitant]
     Route: 048
     Dates: end: 20050906
  6. ISCOTIN [Concomitant]
     Route: 048
     Dates: start: 20050728
  7. EBUTOL [Concomitant]
     Route: 048
     Dates: start: 20050728
  8. PAXIL [Concomitant]
     Route: 048
     Dates: start: 20050610
  9. DOGMATYL [Concomitant]
     Route: 048
     Dates: start: 20050610
  10. LAC B [Concomitant]
     Route: 048
  11. TAKEPRON [Concomitant]
     Route: 048
  12. MAGNESIUM OXIDE [Concomitant]
     Route: 048

REACTIONS (8)
  - ANAEMIA [None]
  - CEREBRAL INFARCTION [None]
  - GASTRIC ULCER HAEMORRHAGE [None]
  - PLATELET COUNT DECREASED [None]
  - SHOCK HAEMORRHAGIC [None]
  - THERAPY NON-RESPONDER [None]
  - THROMBOCYTOPENIA [None]
  - WHITE BLOOD CELL COUNT DECREASED [None]
